FAERS Safety Report 20481129 (Version 2)
Quarter: 2022Q2

REPORT INFORMATION
  Report Type: Spontaneous
  Country: US (occurrence: None)
  Receive Date: 20220216
  Receipt Date: 20220406
  Transmission Date: 20220721
  Serious: No
  Sender: FDA-Public Use
  Company Number: 2022A045252

PATIENT
  Age: 24240 Day
  Sex: Male
  Weight: 79.4 kg

DRUGS (1)
  1. BYDUREON BCISE [Suspect]
     Active Substance: EXENATIDE
     Indication: Diabetes mellitus
     Dosage: 2MG/ML ONCE A WEEK
     Route: 058

REACTIONS (4)
  - Injection site haemorrhage [Unknown]
  - Injection site indentation [Unknown]
  - Drug dose omission by device [Unknown]
  - Device leakage [Unknown]

NARRATIVE: CASE EVENT DATE: 20220123
